FAERS Safety Report 8861926 (Version 1)
Quarter: 2012Q4

REPORT INFORMATION
  Report Type: Spontaneous
  Country: US (occurrence: None)
  Receive Date: 20121023
  Receipt Date: 20121023
  Transmission Date: 20130627
  Serious: Yes (Other)
  Sender: FDA-Public Use
  Company Number: 2012SGN00410

PATIENT
  Age: 72 Year
  Sex: Male

DRUGS (1)
  1. ADCETRIS (BRENTUXIMAB VEDOTIN) INJECTION [Suspect]
     Indication: HODGKIN^S LYMPHOMA
     Dosage: q21d
     Route: 042
     Dates: start: 20120827, end: 20120827

REACTIONS (3)
  - Oesophageal candidiasis [None]
  - Hiccups [None]
  - Candidiasis [None]
